FAERS Safety Report 8766721 (Version 6)
Quarter: 2013Q3

REPORT INFORMATION
  Report Type: Report from Study
  Country: JP (occurrence: JP)
  Receive Date: 20120904
  Receipt Date: 20130920
  Transmission Date: 20140515
  Serious: Yes (Hospitalization, Other)
  Sender: FDA-Public Use
  Company Number: JP-VERTEX PHARMACEUTICAL INC.-AE-2012-008217

PATIENT
  Age: 70 Year
  Sex: Female

DRUGS (14)
  1. VX-950 (TELAPREVIR) [Suspect]
     Indication: CHRONIC HEPATITIS C
     Dosage: 2250 MG, QD
     Route: 048
     Dates: start: 20120403, end: 20120520
  2. VX-950 (TELAPREVIR) [Suspect]
     Dosage: 1500 MG, QD
     Route: 048
     Dates: start: 20120521, end: 20120626
  3. REBETOL [Suspect]
     Indication: CHRONIC HEPATITIS C
     Dosage: 400 MG, QD
     Route: 048
     Dates: start: 20120403, end: 20120430
  4. REBETOL [Suspect]
     Dosage: 200 MG, QD
     Route: 048
     Dates: start: 20120501, end: 20120717
  5. PEGINTRON [Suspect]
     Indication: CHRONIC HEPATITIS C
     Dosage: 1.5 ?G/KG, QW
     Route: 058
     Dates: start: 20120403, end: 20120718
  6. URSO [Concomitant]
     Dosage: 900 MG, QD
     Route: 048
     Dates: end: 20120715
  7. URSO [Concomitant]
     Dosage: 900 MG, QD
     Route: 048
     Dates: start: 20120809
  8. BENZATOL SR [Concomitant]
     Dosage: 400 MG, QD
     Route: 048
     Dates: end: 20120715
  9. THYRADIN [Concomitant]
     Dosage: 50 ?G, QD
     Route: 048
     Dates: end: 20120610
  10. THYRADIN [Concomitant]
     Dosage: 75 ?G, QD
     Route: 048
     Dates: end: 20120715
  11. THYRADIN [Concomitant]
     Dosage: 100 ?G, QD
     Route: 048
     Dates: start: 20120719
  12. FLUMETHOLON [Concomitant]
     Dosage: UNK, BID
     Route: 031
  13. HYALEIN [Concomitant]
     Dosage: UNK, QID
     Route: 031
  14. TRAVATANZ [Concomitant]
     Dosage: UNK, QD
     Route: 031

REACTIONS (5)
  - Pneumonia aspiration [Recovered/Resolved]
  - Ileus [Recovered/Resolved]
  - Pancreatitis acute [Recovered/Resolved]
  - Anaemia [Recovered/Resolved]
  - Neutrophil count decreased [Recovered/Resolved]
